FAERS Safety Report 14869752 (Version 1)
Quarter: 2018Q2

REPORT INFORMATION
  Report Type: Spontaneous
  Country: FR (occurrence: FR)
  Receive Date: 20180509
  Receipt Date: 20180509
  Transmission Date: 20180711
  Serious: Yes (Hospitalization)
  Sender: FDA-Public Use
  Company Number: FR-SA-2018SA119862

PATIENT
  Age: 45 Year
  Sex: Female
  Weight: 64 kg

DRUGS (2)
  1. LOVENOX [Suspect]
     Active Substance: ENOXAPARIN SODIUM
     Indication: MITRAL VALVE REPLACEMENT
     Route: 058
     Dates: start: 20150605, end: 20150617
  2. LOVENOX [Suspect]
     Active Substance: ENOXAPARIN SODIUM
     Indication: MITRAL VALVE REPLACEMENT
     Route: 058
     Dates: start: 20150528, end: 20150604

REACTIONS (2)
  - Haemoglobin decreased [Recovering/Resolving]
  - Gastric ulcer [Recovering/Resolving]

NARRATIVE: CASE EVENT DATE: 20150618
